FAERS Safety Report 9475708 (Version 1)
Quarter: 2013Q3

REPORT INFORMATION
  Report Type: Spontaneous
  Country: BE (occurrence: BE)
  Receive Date: 20130826
  Receipt Date: 20130826
  Transmission Date: 20140515
  Serious: Yes (Hospitalization)
  Sender: FDA-Public Use
  Company Number: PHHY2013BE091681

PATIENT
  Age: 58 Year
  Sex: Male

DRUGS (5)
  1. ACLASTA [Suspect]
     Indication: OSTEITIS DEFORMANS
     Dosage: UNK UKN, UNK
     Route: 042
     Dates: start: 20130709
  2. SIMVASTATINE [Concomitant]
     Dosage: UNK UKN, UNK
  3. GLUCOPHAGE [Concomitant]
     Dosage: UNK UKN, UNK
  4. PANTOMED//DEXPANTHENOL [Concomitant]
     Dosage: UNK UKN, UNK
  5. ADENURIC [Concomitant]
     Dosage: UNK UKN, UNK

REACTIONS (6)
  - Splenomegaly [Recovered/Resolved]
  - Pyrexia [Recovered/Resolved]
  - Chills [Recovered/Resolved]
  - Nausea [Recovered/Resolved]
  - Back pain [Recovered/Resolved]
  - Rash [Recovered/Resolved]
